FAERS Safety Report 14452292 (Version 1)
Quarter: 2018Q1

REPORT INFORMATION
  Report Type: Report from Study
  Country: AR (occurrence: AR)
  Receive Date: 20180129
  Receipt Date: 20180129
  Transmission Date: 20180509
  Serious: Yes (Death)
  Sender: FDA-Public Use
  Company Number: PHHY2018AR013967

PATIENT
  Sex: Male

DRUGS (3)
  1. OLDINOT [Concomitant]
     Indication: MEMORY IMPAIRMENT
     Route: 065
  2. LEBOCAR [Concomitant]
     Indication: PARKINSON^S DISEASE
     Route: 065
  3. ENTRESTO [Suspect]
     Active Substance: SACUBITRIL\VALSARTAN
     Indication: CARDIAC FAILURE CHRONIC
     Dosage: UNK
     Route: 065
     Dates: start: 201609

REACTIONS (2)
  - Cardiac disorder [Fatal]
  - Parkinson^s disease [Fatal]
